FAERS Safety Report 18816358 (Version 1)
Quarter: 2021Q1

REPORT INFORMATION
  Report Type: Spontaneous
  Country: US (occurrence: US)
  Receive Date: 20210201
  Receipt Date: 20210201
  Transmission Date: 20210419
  Serious: Yes (Disabling, Other)
  Sender: FDA-Public Use
  Company Number: None

PATIENT
  Age: 27 Year
  Sex: Female
  Weight: 117 kg

DRUGS (17)
  1. VITAMIN D [Concomitant]
     Active Substance: VITAMIN D NOS
  2. ABILIFY [Concomitant]
     Active Substance: ARIPIPRAZOLE
  3. LEVOTHYROXINE. [Concomitant]
     Active Substance: LEVOTHYROXINE
  4. SPIRULINA [Concomitant]
     Active Substance: HERBALS\SPIRULINA
  5. MONTELUKAST SODIUM TABLETS 10MG* [Suspect]
     Active Substance: MONTELUKAST SODIUM
     Indication: ASTHMA
     Dosage: ?          QUANTITY:1 TABLET(S);?
     Route: 048
     Dates: start: 20210104, end: 20210118
  6. LEVALBUTEROL. [Concomitant]
     Active Substance: LEVALBUTEROL
  7. MULTIVITAMIN [Concomitant]
     Active Substance: VITAMINS
  8. MONTELUKAST SODIUM TABLETS 10MG* [Suspect]
     Active Substance: MONTELUKAST SODIUM
     Indication: MULTIPLE ALLERGIES
     Dosage: ?          QUANTITY:1 TABLET(S);?
     Route: 048
     Dates: start: 20210104, end: 20210118
  9. OMEPRAZOLE. [Concomitant]
     Active Substance: OMEPRAZOLE
  10. KYLEENA [Concomitant]
     Active Substance: LEVONORGESTREL
  11. VITAMIN B12 [Concomitant]
     Active Substance: CYANOCOBALAMIN
  12. BERBERINE [Concomitant]
     Active Substance: BERBERINE
  13. N?ACYTL?CYSTINE [Concomitant]
  14. WELLBUTRIN [Concomitant]
     Active Substance: BUPROPION HYDROCHLORIDE
  15. METHYLPHENIDATE. [Concomitant]
     Active Substance: METHYLPHENIDATE
  16. TOPIRIMATE [Concomitant]
     Active Substance: TOPIRAMATE
  17. OMEGA 3 [Concomitant]
     Active Substance: OMEGA-3 FATTY ACIDS

REACTIONS (3)
  - Muscle twitching [None]
  - Muscle spasms [None]
  - Vaginal disorder [None]

NARRATIVE: CASE EVENT DATE: 20210108
